FAERS Safety Report 6076599-9 (Version None)
Quarter: 2009Q1

REPORT INFORMATION
  Report Type: 
  Country: None (occurrence: None)
  Receive Date: 20090213
  Receipt Date: 20081020
  Transmission Date: 20090719
  Serious: No
  Sender: FDA-Public Use
  Company Number: US-BRISTOL-MYERS SQUIBB COMPANY-14376511

PATIENT

DRUGS (2)
  1. IXABEPILONE [Suspect]
  2. XELODA [Suspect]

REACTIONS (1)
  - FULL BLOOD COUNT DECREASED [None]
